FAERS Safety Report 17407459 (Version 7)
Quarter: 2020Q4

REPORT INFORMATION
  Report Type: Report from Study
  Country: US (occurrence: US)
  Receive Date: 20200212
  Receipt Date: 20201023
  Transmission Date: 20210113
  Serious: No
  Sender: FDA-Public Use
  Company Number: US-KYOWAKIRIN-2020BKK001766

PATIENT

DRUGS (1)
  1. POTELIGEO [Suspect]
     Active Substance: MOGAMULIZUMAB-KPKC
     Indication: PRODUCT USED FOR UNKNOWN INDICATION
     Dosage: UNK
     Route: 065
     Dates: end: 20200904

REACTIONS (6)
  - Chest pain [Unknown]
  - Pain [Unknown]
  - Gait disturbance [Unknown]
  - Cardiac discomfort [Unknown]
  - Myalgia [Unknown]
  - Headache [Unknown]
